FAERS Safety Report 25511585 (Version 1)
Quarter: 2025Q3

REPORT INFORMATION
  Report Type: Spontaneous
  Country: US (occurrence: None)
  Receive Date: 20250703
  Receipt Date: 20250703
  Transmission Date: 20251020
  Serious: Yes (Death)
  Sender: FDA-CTU
  Company Number: None

PATIENT
  Age: 93 Year
  Sex: Female

DRUGS (1)
  1. TOLVAPTAN [Suspect]
     Active Substance: TOLVAPTAN
     Indication: Hyponatraemia
     Dosage: 15 MG 3 DAY A WEEK ORAL
     Route: 048
     Dates: start: 20220920, end: 20250624

REACTIONS (1)
  - Lung disorder [None]

NARRATIVE: CASE EVENT DATE: 20250624
